FAERS Safety Report 4398775-3 (Version None)
Quarter: 2004Q3

REPORT INFORMATION
  Report Type: 
  Country: None (occurrence: None)
  Receive Date: 20040712
  Receipt Date: 20040621
  Transmission Date: 20050211
  Serious: Yes (Hospitalization)
  Sender: FDA-Public Use
  Company Number: USA040669682

PATIENT
  Age: 56 Year
  Sex: Female
  Weight: 73 kg

DRUGS (9)
  1. EVISTA [Suspect]
     Dosage: 60 MG
  2. ZYPREXA [Suspect]
     Indication: DEPRESSION
     Dates: start: 20040107
  3. ZOLOFT [Concomitant]
  4. SOMA [Concomitant]
  5. TOPAMAX [Concomitant]
  6. NORVASC [Concomitant]
  7. PREDNISONE [Concomitant]
  8. ZANAFLEX [Concomitant]
  9. PAMELOR [Concomitant]

REACTIONS (7)
  - COMA [None]
  - DIABETIC KETOACIDOSIS [None]
  - INCREASED APPETITE [None]
  - NAUSEA [None]
  - RESPIRATORY FAILURE [None]
  - TACHYCARDIA [None]
  - VOMITING [None]
